FAERS Safety Report 18235614 (Version 2)
Quarter: 2020Q3

REPORT INFORMATION
  Report Type: Spontaneous
  Country: JP (occurrence: JP)
  Receive Date: 20200905
  Receipt Date: 20200925
  Transmission Date: 20201103
  Serious: Yes (Other)
  Sender: FDA-Public Use
  Company Number: JP-AMGEN-JPNSP2020144191

PATIENT
  Age: 49 Year
  Sex: Male
  Weight: 48 kg

DRUGS (49)
  1. CARVEDILOL. [Concomitant]
     Active Substance: CARVEDILOL
     Dosage: 7.5 MG
     Route: 065
  2. PERINDOPRIL [Concomitant]
     Active Substance: PERINDOPRIL
     Indication: PRODUCT USED FOR UNKNOWN INDICATION
     Dosage: 1 MG
     Route: 065
  3. ALDACTONE [Concomitant]
     Active Substance: SPIRONOLACTONE
     Indication: PRODUCT USED FOR UNKNOWN INDICATION
     Dosage: 50 UNK
     Route: 065
  4. ALDACTONE [Concomitant]
     Active Substance: SPIRONOLACTONE
     Dosage: 50 UNK
     Route: 065
  5. DOBUTAMINE [Concomitant]
     Active Substance: DOBUTAMINE HYDROCHLORIDE
     Dosage: 4 GAMMA
     Route: 065
  6. DIGOXIN. [Concomitant]
     Active Substance: DIGOXIN
     Indication: PRODUCT USED FOR UNKNOWN INDICATION
     Dosage: 0.25 MG
     Route: 065
  7. ACARDI [Concomitant]
     Active Substance: PIMOBENDAN
     Dosage: 10 MG
     Route: 065
  8. BAYASPIRIN [Concomitant]
     Active Substance: ASPIRIN
     Indication: PRODUCT USED FOR UNKNOWN INDICATION
     Dosage: 100 MG, EVERYDAY
     Route: 048
  9. NEXIUM [Concomitant]
     Active Substance: ESOMEPRAZOLE MAGNESIUM
     Dosage: 20 MG, EVERYDAY
     Route: 048
  10. ROSUVASTATIN. [Concomitant]
     Active Substance: ROSUVASTATIN
     Dosage: 5 MG, EVERYDAY
     Route: 048
  11. CARVEDILOL. [Concomitant]
     Active Substance: CARVEDILOL
     Dosage: 1.25 MG
     Route: 065
  12. LASIX [Concomitant]
     Active Substance: FUROSEMIDE
     Dosage: 160 MILLIGRAM
     Route: 065
  13. DOBUTAMINE [Concomitant]
     Active Substance: DOBUTAMINE HYDROCHLORIDE
     Dosage: 1 GAMMA
     Route: 065
  14. DIGOXIN. [Concomitant]
     Active Substance: DIGOXIN
     Dosage: 0.125 MG
     Route: 065
  15. DIART [Concomitant]
     Active Substance: AZOSEMIDE
     Dosage: 180 MG
     Route: 065
  16. ACARDI [Concomitant]
     Active Substance: PIMOBENDAN
     Indication: PRODUCT USED FOR UNKNOWN INDICATION
     Dosage: 7.5 MG
     Route: 065
  17. ACARDI [Concomitant]
     Active Substance: PIMOBENDAN
     Dosage: 10 MG
     Route: 065
  18. CARVEDILOL. [Concomitant]
     Active Substance: CARVEDILOL
     Dosage: 6.25 MG
     Route: 065
  19. ALDACTONE [Concomitant]
     Active Substance: SPIRONOLACTONE
     Dosage: 25 UNK
     Route: 065
  20. LUPRAC [Concomitant]
     Active Substance: TORSEMIDE
     Dosage: 8 MG, EVERYDAY
     Route: 048
  21. DOPAMINE [Concomitant]
     Active Substance: DOPAMINE HYDROCHLORIDE
     Indication: PRODUCT USED FOR UNKNOWN INDICATION
     Dosage: 1 GAMMA
     Route: 065
  22. DOPAMINE [Concomitant]
     Active Substance: DOPAMINE HYDROCHLORIDE
     Dosage: 3 GAMMA
  23. DOBUTAMINE [Concomitant]
     Active Substance: DOBUTAMINE HYDROCHLORIDE
     Dosage: 2 GAMMA (3/1)
     Route: 065
  24. DOBUTAMINE [Concomitant]
     Active Substance: DOBUTAMINE HYDROCHLORIDE
     Dosage: 3 GAMMA
     Route: 065
  25. IVABRADINE [Suspect]
     Active Substance: IVABRADINE
     Dosage: UNK
     Route: 065
  26. CARVEDILOL. [Concomitant]
     Active Substance: CARVEDILOL
     Dosage: 2.5 MG
     Route: 065
  27. TOLVAPTAN [Concomitant]
     Active Substance: TOLVAPTAN
     Indication: PRODUCT USED FOR UNKNOWN INDICATION
     Dosage: 15 MG
     Route: 065
  28. TOLVAPTAN [Concomitant]
     Active Substance: TOLVAPTAN
     Dosage: 3.75 MG
     Route: 065
  29. LASIX [Concomitant]
     Active Substance: FUROSEMIDE
     Dosage: 160 MILLIGRAM
     Route: 065
  30. DOBUTAMINE [Concomitant]
     Active Substance: DOBUTAMINE HYDROCHLORIDE
     Dosage: 1.5 GAMMA
     Route: 065
  31. DOBUTAMINE [Concomitant]
     Active Substance: DOBUTAMINE HYDROCHLORIDE
     Dosage: 3 GAMMA
     Route: 065
  32. NOREPINEPHRINE. [Concomitant]
     Active Substance: NOREPINEPHRINE
     Indication: PRODUCT USED FOR UNKNOWN INDICATION
     Dosage: UNK
     Route: 065
     Dates: start: 202004
  33. EFIENT [Concomitant]
     Active Substance: PRASUGREL HYDROCHLORIDE
     Indication: PRODUCT USED FOR UNKNOWN INDICATION
     Dosage: 3.75 MG, EVERYDAY
     Route: 048
  34. LIXIANA [Concomitant]
     Active Substance: EDOXABAN TOSYLATE
     Dosage: 30 MG, EVERYDAY
     Route: 048
  35. CARVEDILOL. [Concomitant]
     Active Substance: CARVEDILOL
     Dosage: 5 MG
     Route: 065
  36. TOLVAPTAN [Concomitant]
     Active Substance: TOLVAPTAN
     Dosage: 15 MG
     Route: 065
  37. LASIX [Concomitant]
     Active Substance: FUROSEMIDE
     Indication: PRODUCT USED FOR UNKNOWN INDICATION
     Dosage: 120 MILLIGRAM
     Route: 065
  38. LASIX [Concomitant]
     Active Substance: FUROSEMIDE
     Dosage: 120 MILLIGRAM
     Route: 065
  39. ACARDI [Concomitant]
     Active Substance: PIMOBENDAN
     Dosage: 7.5 MG
     Route: 065
  40. IVABRADINE [Suspect]
     Active Substance: IVABRADINE
     Indication: CARDIAC FAILURE CHRONIC
     Dosage: 2.5 MILLIGRAM, BID
     Route: 048
     Dates: start: 20200226, end: 20200608
  41. IVABRADINE [Suspect]
     Active Substance: IVABRADINE
     Dosage: 5 MILLIGRAM
     Route: 048
     Dates: start: 20200609, end: 20200716
  42. IVABRADINE [Suspect]
     Active Substance: IVABRADINE
     Dosage: 7.5 MILLIGRAM
     Route: 048
     Dates: start: 20200716
  43. CARVEDILOL. [Concomitant]
     Active Substance: CARVEDILOL
     Indication: PRODUCT USED FOR UNKNOWN INDICATION
     Dosage: 1.25 MG
     Route: 065
  44. LUPRAC [Concomitant]
     Active Substance: TORSEMIDE
     Indication: PRODUCT USED FOR UNKNOWN INDICATION
     Dosage: 8 MG
     Route: 065
  45. LUPRAC [Concomitant]
     Active Substance: TORSEMIDE
     Dosage: 4 MG, EVERYDAY
     Route: 048
  46. DOPAMINE [Concomitant]
     Active Substance: DOPAMINE HYDROCHLORIDE
     Dosage: 2 GAMMA
  47. EPLERENONE. [Concomitant]
     Active Substance: EPLERENONE
     Indication: PRODUCT USED FOR UNKNOWN INDICATION
     Dosage: 50 MG
     Route: 065
  48. DOBUTAMINE [Concomitant]
     Active Substance: DOBUTAMINE HYDROCHLORIDE
     Indication: PRODUCT USED FOR UNKNOWN INDICATION
     Dosage: 1 GAMMA
     Route: 065
  49. DIART [Concomitant]
     Active Substance: AZOSEMIDE
     Indication: PRODUCT USED FOR UNKNOWN INDICATION
     Dosage: 180 MG
     Route: 065

REACTIONS (4)
  - Bradycardia [Unknown]
  - Urinary tract infection [Recovered/Resolved]
  - Pulse pressure decreased [Recovered/Resolved]
  - Product use issue [Recovered/Resolved]

NARRATIVE: CASE EVENT DATE: 2020
